FAERS Safety Report 8493943 (Version 4)
Quarter: 2012Q4

REPORT INFORMATION
  Report Type: 
  Country: US (occurrence: US)
  Receive Date: 20120404
  Receipt Date: 20121109
  Transmission Date: 20130627
  Serious: Yes (Life-Threatening, Hospitalization)
  Sender: FDA-Public Use
  Company Number: US-ACTELION-A-US2009-25341

PATIENT
  Age: 27 Year
  Sex: Female

DRUGS (12)
  1. TRACLEER [Suspect]
     Indication: PULMONARY ARTERIAL HYPERTENSION
     Dosage: 125 mg, bid
     Route: 048
     Dates: start: 20090313
  2. PREDNISONE [Suspect]
     Dosage: 5 mg, qd
  3. SILDENAFIL [Concomitant]
  4. OXYGEN [Concomitant]
  5. OMEPRAZOLE [Concomitant]
  6. CALCIUM [Concomitant]
  7. IRON [Concomitant]
  8. DIFENHYDRAMIN [Concomitant]
  9. GUAIFENESIN [Concomitant]
  10. PANTOPRAZOLE [Concomitant]
  11. ALMIN [Concomitant]
  12. CEPACOL [Concomitant]

REACTIONS (19)
  - Immunodeficiency [Unknown]
  - Juvenile idiopathic arthritis [Recovered/Resolved]
  - Infection [Recovered/Resolved]
  - Pyrexia [Unknown]
  - Pulmonary arterial hypertension [Unknown]
  - Hypokalaemia [Unknown]
  - Gastrooesophageal reflux disease [Unknown]
  - Urinary tract infection [Unknown]
  - Blood culture positive [Recovered/Resolved]
  - Arthralgia [Recovered/Resolved]
  - Rash [Recovered/Resolved]
  - Pain [Recovered/Resolved]
  - Condition aggravated [Recovered/Resolved]
  - Tachycardia [Unknown]
  - Hypoxia [Recovering/Resolving]
  - Cough [Recovering/Resolving]
  - Wheezing [Recovering/Resolving]
  - Dyspnoea [Recovering/Resolving]
  - Pericardial effusion [None]
